FAERS Safety Report 7361453-2 (Version None)
Quarter: 2011Q1

REPORT INFORMATION
  Report Type: 
  Country: None (occurrence: None)
  Receive Date: 20110310
  Receipt Date: 20110228
  Transmission Date: 20110831
  Serious: Yes (Other)
  Sender: FDA-Public Use
  Company Number: 028383

PATIENT
  Age: 64 Year
  Sex: Female

DRUGS (4)
  1. LACOSAMIDE [Suspect]
     Indication: STATUS EPILEPTICUS
     Dosage: (50 MG BID, PATIENT RECEIVED 4 DOSES INTRAVENOUS (NOT OTHERWISE SPECIFIED))
     Route: 042
     Dates: start: 20110201, end: 20110220
  2. KEPPRA [Suspect]
     Indication: STATUS EPILEPTICUS
     Dosage: (1000 MG)
  3. GABAPENTIN [Concomitant]
  4. PHENYTOIN [Suspect]
     Indication: STATUS EPILEPTICUS
     Dosage: (400 MG INTRAVENOUS (NOT OTHERWISE SPECIFIED))
     Route: 042

REACTIONS (6)
  - ALANINE AMINOTRANSFERASE INCREASED [None]
  - BLOOD ALKALINE PHOSPHATASE INCREASED [None]
  - LEUKOPENIA [None]
  - PYREXIA [None]
  - ASPARTATE AMINOTRANSFERASE INCREASED [None]
  - BLOOD BILIRUBIN INCREASED [None]
